FAERS Safety Report 5067973-8 (Version None)
Quarter: 2006Q3

REPORT INFORMATION
  Report Type: 
  Country: None (occurrence: None)
  Receive Date: 20060802
  Receipt Date: 20060721
  Transmission Date: 20061208
  Serious: Yes (Other)
  Sender: FDA-Public Use
  Company Number: GB-GILEAD-2006-0009906

PATIENT
  Sex: Male
  Weight: 99 kg

DRUGS (4)
  1. VIREAD [Suspect]
     Indication: HIV INFECTION
  2. EMTRIVA [Concomitant]
     Route: 048
  3. RITONAVIR [Concomitant]
     Route: 048
  4. BEZOLIP MONO [Concomitant]
     Route: 048

REACTIONS (4)
  - HYPERCALCAEMIA [None]
  - HYPERPARATHYROIDISM [None]
  - HYPERPHOSPHATURIA [None]
  - VITAMIN D DEFICIENCY [None]
